FAERS Safety Report 15136121 (Version 1)
Quarter: 2018Q3

REPORT INFORMATION
  Report Type: Report from Study
  Country: IT (occurrence: IT)
  Receive Date: 20180712
  Receipt Date: 20180712
  Transmission Date: 20181010
  Serious: Yes (Hospitalization)
  Sender: FDA-Public Use
  Company Number: IT-PFIZER INC-2018277494

PATIENT
  Age: 80 Year
  Sex: Male

DRUGS (4)
  1. LUVION /00252501/ [Concomitant]
     Active Substance: CANRENOIC ACID
  2. HALCION [Suspect]
     Active Substance: TRIAZOLAM
  3. PANTORC [Concomitant]
     Active Substance: PANTOPRAZOLE SODIUM
  4. TRIATEC /00885601/ [Concomitant]
     Active Substance: RAMIPRIL

REACTIONS (3)
  - Overdose [Unknown]
  - Feeling jittery [Unknown]
  - Dehydration [Unknown]

NARRATIVE: CASE EVENT DATE: 20180413
